FAERS Safety Report 12184023 (Version 1)
Quarter: 2016Q1

REPORT INFORMATION
  Report Type: Spontaneous
  Country: BR (occurrence: BR)
  Receive Date: 20160316
  Receipt Date: 20160316
  Transmission Date: 20160526
  Serious: Yes (Other)
  Sender: FDA-Public Use
  Company Number: PHHY2016BR034870

PATIENT
  Age: 64 Year
  Sex: Female

DRUGS (3)
  1. VINORELBINE [Suspect]
     Active Substance: VINORELBINE\VINORELBINE TARTRATE
     Indication: SARCOMA METASTATIC
     Dosage: 25 MG/M2, UNK
     Route: 065
  2. CYCLOPHOSPHAMIDE. [Suspect]
     Active Substance: CYCLOPHOSPHAMIDE
     Indication: SARCOMA METASTATIC
     Dosage: 50 MG, QD
     Route: 048
  3. TOPOTECAN [Suspect]
     Active Substance: TOPOTECAN\TOPOTECAN HYDROCHLORIDE
     Indication: SARCOMA METASTATIC
     Dosage: 1.25 MG/M2, D1-5 EVERY 21 DAYS
     Route: 065

REACTIONS (9)
  - Sarcoma metastatic [Recovering/Resolving]
  - Pyrexia [Unknown]
  - General physical health deterioration [Recovered/Resolved]
  - Abdominal pain [Unknown]
  - Malaise [Recovering/Resolving]
  - Therapeutic response decreased [Unknown]
  - Jaundice [Recovering/Resolving]
  - Hepatic mass [Unknown]
  - Malignant neoplasm progression [Recovering/Resolving]
